FAERS Safety Report 21926294 (Version 3)
Quarter: 2023Q1

REPORT INFORMATION
  Report Type: Report from Study
  Country: US (occurrence: US)
  Receive Date: 20230130
  Receipt Date: 20230306
  Transmission Date: 20230418
  Serious: Yes (Other)
  Sender: FDA-Public Use
  Company Number: US-Ipsen Biopharmaceuticals, Inc.-2023-00362

PATIENT
  Age: 66 Year

DRUGS (2)
  1. SOMATULINE DEPOT [Suspect]
     Active Substance: LANREOTIDE ACETATE
     Indication: Neuroendocrine tumour
     Route: 058
     Dates: start: 202108
  2. SOMATULINE DEPOT [Suspect]
     Active Substance: LANREOTIDE ACETATE
     Indication: Bone neoplasm

REACTIONS (20)
  - Mass excision [Not Recovered/Not Resolved]
  - Fat embolism [Not Recovered/Not Resolved]
  - Scar [Not Recovered/Not Resolved]
  - Application site pain [Not Recovered/Not Resolved]
  - Fatigue [Not Recovered/Not Resolved]
  - Asthenia [Not Recovered/Not Resolved]
  - Fatigue [Not Recovered/Not Resolved]
  - Injection site inflammation [Not Recovered/Not Resolved]
  - Hypovitaminosis [Not Recovered/Not Resolved]
  - Affect lability [Not Recovered/Not Resolved]
  - Stress [Not Recovered/Not Resolved]
  - Dizziness [Not Recovered/Not Resolved]
  - Dizziness [Not Recovered/Not Resolved]
  - Headache [Not Recovered/Not Resolved]
  - Blood pressure increased [Not Recovered/Not Resolved]
  - Hyporeflexia [Not Recovered/Not Resolved]
  - Disturbance in attention [Not Recovered/Not Resolved]
  - Injection site rash [Not Recovered/Not Resolved]
  - Injection site reaction [Not Recovered/Not Resolved]
  - Product quality issue [Unknown]
